FAERS Safety Report 22525089 (Version 1)
Quarter: 2023Q2

REPORT INFORMATION
  Report Type: Spontaneous
  Country: GB (occurrence: GB)
  Receive Date: 20230606
  Receipt Date: 20230606
  Transmission Date: 20230722
  Serious: Yes (Other)
  Sender: FDA-Public Use
  Company Number: None

PATIENT
  Age: 75 Year
  Sex: Female
  Weight: 79 kg

DRUGS (9)
  1. MONTELUKAST [Suspect]
     Active Substance: MONTELUKAST SODIUM
     Indication: Product used for unknown indication
     Dosage: EVERY EVENING
     Dates: start: 20230502, end: 20230519
  2. ATORVASTATIN [Concomitant]
     Active Substance: ATORVASTATIN
     Indication: Hypercholesterolaemia
     Dosage: EACH EVENING
     Dates: start: 20221101
  3. AMOXICILLIN [Concomitant]
     Active Substance: AMOXICILLIN
     Indication: Product used for unknown indication
     Dosage: TAKE ONE 3 TIMES/DAY
     Dates: start: 20230307, end: 20230312
  4. DOXYCYCLINE [Concomitant]
     Active Substance: DOXYCYCLINE
     Indication: Product used for unknown indication
     Dosage: TAKE TWO NOW THEN ONE DAILY FOR 4 DAYS TO TREAT...
     Dates: start: 20230412, end: 20230417
  5. FLUTICASONE PROPIONATE [Concomitant]
     Active Substance: FLUTICASONE PROPIONATE
     Indication: Product used for unknown indication
     Dosage: PUFFS
     Dates: start: 20221101
  6. FLUTICASONE PROPIONATE [Concomitant]
     Active Substance: FLUTICASONE PROPIONATE
     Dosage: USE AS DIRECTED
     Dates: start: 20221101
  7. LOSARTAN [Concomitant]
     Active Substance: LOSARTAN
     Indication: Hypertension
     Dates: start: 20221101
  8. PAROXETINE [Concomitant]
     Active Substance: PAROXETINE
     Indication: Product used for unknown indication
     Dates: start: 20221101
  9. ALBUTEROL [Concomitant]
     Active Substance: ALBUTEROL
     Indication: Product used for unknown indication
     Dosage: INHALE
     Route: 055
     Dates: start: 20221101

REACTIONS (5)
  - Pain [Unknown]
  - Malaise [Unknown]
  - Fatigue [Unknown]
  - Headache [Recovering/Resolving]
  - Pyrexia [Unknown]
